FAERS Safety Report 12391947 (Version 1)
Quarter: 2016Q2

REPORT INFORMATION
  Report Type: Spontaneous
  Country: US (occurrence: US)
  Receive Date: 20160523
  Receipt Date: 20160523
  Transmission Date: 20160815
  Serious: Yes (Other)
  Sender: FDA-Public Use
  Company Number: US-JNJFOC-20160517237

PATIENT
  Sex: Female
  Weight: 49.9 kg

DRUGS (1)
  1. LISTERINE ULTRACLEAN ANTISEPTIC COOL MINT [Suspect]
     Active Substance: EUCALYPTOL\MENTHOL\METHYL SALICYLATE\THYMOL
     Indication: DENTAL DISORDER PROPHYLAXIS
     Dosage: DOSE: HALF A CAPFUL
     Route: 048
     Dates: end: 20160517

REACTIONS (2)
  - Asthenia [Recovering/Resolving]
  - Loss of consciousness [Recovering/Resolving]
